FAERS Safety Report 8458633-1 (Version None)
Quarter: 2012Q2

REPORT INFORMATION
  Report Type: 
  Country: None (occurrence: None)
  Receive Date: 20120622
  Receipt Date: 20120613
  Transmission Date: 20120825
  Serious: Yes (Hospitalization)
  Sender: FDA-Public Use
  Company Number: DK-JNJFOC-20120214264

PATIENT
  Sex: Male
  Weight: 74 kg

DRUGS (10)
  1. EMPERAL [Concomitant]
  2. FOLIMET [Concomitant]
  3. ALENDRONATE SODIUM [Concomitant]
  4. REMICADE [Suspect]
     Indication: RHEUMATOID ARTHRITIS
     Route: 042
     Dates: end: 20110517
  5. MANDOLGIN [Concomitant]
  6. METHOTREXATE [Suspect]
     Indication: RHEUMATOID ARTHRITIS
     Dates: start: 20040206, end: 20110517
  7. BUPRENORPHINE HCL [Concomitant]
  8. MAGNYL [Concomitant]
  9. REMICADE [Suspect]
     Dosage: WEEK 0, 2, 6
     Route: 042
     Dates: start: 20100120
  10. PREDNISOLONE [Concomitant]
     Dates: start: 20020412, end: 20110222

REACTIONS (2)
  - LUNG ADENOCARCINOMA [None]
  - MUSCULOSKELETAL CHEST PAIN [None]
